FAERS Safety Report 5928878-0 (Version None)
Quarter: 2008Q4

REPORT INFORMATION
  Report Type: 
  Country: None (occurrence: None)
  Receive Date: 20081024
  Receipt Date: 20081017
  Transmission Date: 20090506
  Serious: Yes (Other)
  Sender: FDA-Public Use
  Company Number: US-WYE-H06487908

PATIENT
  Age: 4 Year
  Sex: Male
  Weight: 18.16 kg

DRUGS (1)
  1. DIMETAPP NIGHTIME FLU [Suspect]
     Indication: COUGH
     Dosage: TWO TEASPOONS EVERY FOUR TO FIVE HOURS
     Route: 048
     Dates: start: 20081013, end: 20081014

REACTIONS (5)
  - DRUG ADMINISTRATION ERROR [None]
  - GENERALISED ERYTHEMA [None]
  - JOINT SWELLING [None]
  - OVERDOSE [None]
  - PRURITUS GENERALISED [None]
